FAERS Safety Report 24783327 (Version 1)
Quarter: 2024Q4

REPORT INFORMATION
  Report Type: Spontaneous
  Country: US (occurrence: US)
  Receive Date: 20241227
  Receipt Date: 20241227
  Transmission Date: 20250114
  Serious: No
  Sender: BAYER HEALTHCARE LLC
  Company Number: US-BAYER-2024A182894

PATIENT
  Sex: Male

DRUGS (1)
  1. MIRALAX [Suspect]
     Active Substance: POLYETHYLENE GLYCOL 3350
     Indication: Bowel movement irregularity
     Dosage: 1 FULL CAP UNTIL THE WHITE LINE AND THE 1 FULL CAP UNTIL THE RED LINE. DOSE
     Route: 048

REACTIONS (3)
  - Product use issue [Unknown]
  - Therapeutic product effect incomplete [Unknown]
  - Extra dose administered [Unknown]
